FAERS Safety Report 10023771 (Version 2)
Quarter: 2014Q2

REPORT INFORMATION
  Report Type: Other
  Country: CA (occurrence: CA)
  Receive Date: 20140320
  Receipt Date: 20140516
  Transmission Date: 20141212
  Serious: Yes (Other)
  Sender: FDA-Public Use
  Company Number: CA-TARO PHARMACEUTICALS U.S.A., INC-2014SUN00578

PATIENT
  Sex: Female

DRUGS (1)
  1. TARO-TERCONAZOLE VAGINAL CREAM 0.4% [Suspect]
     Indication: VULVOVAGINAL CANDIDIASIS
     Dosage: UNK, ONCE
     Route: 048

REACTIONS (4)
  - Diarrhoea [Recovered/Resolved]
  - Pain [Recovered/Resolved]
  - Swelling face [Recovered/Resolved]
  - Incorrect route of drug administration [Recovered/Resolved]
